FAERS Safety Report 17793622 (Version 1)
Quarter: 2020Q2

REPORT INFORMATION
  Report Type: Spontaneous
  Country: US (occurrence: US)
  Receive Date: 20200515
  Receipt Date: 20200515
  Transmission Date: 20200714
  Serious: Yes (Other)
  Sender: FDA-Public Use
  Company Number: US-PURDUE PHARMA-USA-2020-0151413

PATIENT
  Sex: Male

DRUGS (1)
  1. OXYCONTIN [Suspect]
     Active Substance: OXYCODONE HYDROCHLORIDE
     Indication: BACK PAIN
     Dosage: UNK
     Route: 048
     Dates: start: 1999, end: 2008

REACTIONS (5)
  - Drug dependence [Unknown]
  - Drug withdrawal syndrome [Unknown]
  - Cerebrovascular accident [Unknown]
  - Unevaluable event [Unknown]
  - Hypersomnia [Unknown]
